FAERS Safety Report 8595928 (Version 3)
Quarter: 2014Q1

REPORT INFORMATION
  Report Type: Spontaneous
  Country: US (occurrence: US)
  Receive Date: 20120605
  Receipt Date: 20140131
  Transmission Date: 20141002
  Serious: Yes (Hospitalization, Disabling)
  Sender: FDA-Public Use
  Company Number: US-ASTRAZENECA-2012SE35983

PATIENT
  Age: 57 Year
  Sex: Female

DRUGS (11)
  1. NEXIUM [Suspect]
     Indication: DYSPEPSIA
     Dosage: ONCE OR TWICE A DAY
     Route: 048
     Dates: start: 1980
  2. NEXIUM [Suspect]
     Indication: GASTROOESOPHAGEAL REFLUX DISEASE
     Dosage: ONCE OR TWICE A DAY
     Route: 048
     Dates: start: 1980
  3. PANTOPRAZOLE [Concomitant]
  4. ZANTAC [Concomitant]
  5. TUMS [Concomitant]
     Dosage: 2 PILL TWICE A DAY
  6. PERCOCET [Concomitant]
     Indication: PAIN
  7. PERCOCET [Concomitant]
     Indication: SCIATICA
  8. MORPHINE [Concomitant]
     Indication: PAIN
  9. MORPHINE [Concomitant]
     Indication: SCIATICA
  10. ESTRACE [Concomitant]
     Dates: start: 2001, end: 2003
  11. SYNTHROID [Concomitant]

REACTIONS (17)
  - Femur fracture [Unknown]
  - Fibula fracture [Unknown]
  - Tibia fracture [Unknown]
  - Uterine cancer [Unknown]
  - Kidney infection [Unknown]
  - Arthropathy [Unknown]
  - Joint destruction [Unknown]
  - Osteoporosis [Unknown]
  - Arthritis [Unknown]
  - Bone disorder [Unknown]
  - Bone pain [Unknown]
  - Calcium deficiency [Unknown]
  - Chronic obstructive pulmonary disease [Unknown]
  - Vitamin D deficiency [Unknown]
  - Spinal disorder [Unknown]
  - Osteoarthritis [Unknown]
  - Tendon disorder [Unknown]
